FAERS Safety Report 6720904-4 (Version None)
Quarter: 2010Q2

REPORT INFORMATION
  Report Type: 
  Country: None (occurrence: None)
  Receive Date: 20100512
  Receipt Date: 20090824
  Transmission Date: 20101027
  Serious: Yes (Death)
  Sender: FDA-Public Use
  Company Number: JP-JNJFOC-20090902271

PATIENT
  Age: 14 Year
  Sex: Male

DRUGS (4)
  1. MICONAZOLE [Suspect]
     Route: 065
  2. MICONAZOLE [Suspect]
     Indication: ASPERGILLOSIS
     Dosage: 3 DAYS TO 14 MONTHS
     Route: 065
  3. VORICONAZOLE [Suspect]
     Indication: ASPERGILLOSIS
     Route: 065
  4. MICAFUNGIN [Suspect]
     Indication: ASPERGILLOSIS
     Route: 065

REACTIONS (1)
  - DRUG INEFFECTIVE [None]
